FAERS Safety Report 4960627-5 (Version None)
Quarter: 2006Q2

REPORT INFORMATION
  Report Type: 
  Country: None (occurrence: None)
  Receive Date: 20060403
  Receipt Date: 20050928
  Transmission Date: 20061013
  Serious: Yes (Hospitalization, Other)
  Sender: FDA-Public Use
  Company Number: US-MERCK-0509USA04605

PATIENT
  Age: 82 Year
  Sex: Male

DRUGS (1)
  1. VIOXX [Suspect]
     Route: 048

REACTIONS (8)
  - ACUTE MYOCARDIAL INFARCTION [None]
  - ATRIAL FIBRILLATION [None]
  - BILE DUCT STONE [None]
  - BRADYCARDIA [None]
  - CHOLANGITIS ACUTE [None]
  - ESCHERICHIA SEPSIS [None]
  - MITRAL VALVE INCOMPETENCE [None]
  - PANCREATITIS [None]
